FAERS Safety Report 6229196-6 (Version None)
Quarter: 2009Q2

REPORT INFORMATION
  Report Type: 
  Country: None (occurrence: None)
  Receive Date: 20090615
  Receipt Date: 20090604
  Transmission Date: 20091009
  Serious: Yes (Other)
  Sender: FDA-Public Use
  Company Number: US-JNJFOC-20090602352

PATIENT
  Sex: Female
  Weight: 66.23 kg

DRUGS (2)
  1. REMICADE [Suspect]
     Indication: CROHN'S DISEASE
     Dosage: RECEIVED INFUSION FOR 2 YEARS
     Route: 042
  2. STEROIDS NOS [Concomitant]
     Indication: CROHN'S DISEASE

REACTIONS (2)
  - DRUG EXPOSURE BEFORE PREGNANCY [None]
  - PERIPARTUM CARDIOMYOPATHY [None]
